FAERS Safety Report 21393965 (Version 2)
Quarter: 2023Q1

REPORT INFORMATION
  Report Type: Spontaneous
  Country: JP (occurrence: JP)
  Receive Date: 20220930
  Receipt Date: 20230202
  Transmission Date: 20230418
  Serious: Yes (Hospitalization, Other)
  Sender: FDA-Public Use
  Company Number: JP-ASTELLAS-2021JP006988

PATIENT
  Age: 27 Year
  Sex: Male
  Weight: 132 kg

DRUGS (3)
  1. TACROLIMUS [Suspect]
     Active Substance: TACROLIMUS
     Indication: Prophylaxis against transplant rejection
     Route: 048
  2. TACROLIMUS [Suspect]
     Active Substance: TACROLIMUS
     Route: 048
  3. TACROLIMUS [Suspect]
     Active Substance: TACROLIMUS
     Route: 048

REACTIONS (4)
  - Toxicity to various agents [Recovering/Resolving]
  - Malaise [Recovered/Resolved]
  - Blood pressure increased [Recovered/Resolved]
  - Intentional overdose [Unknown]
